FAERS Safety Report 11451096 (Version 1)
Quarter: 2015Q3

REPORT INFORMATION
  Report Type: Spontaneous
  Country: US (occurrence: US)
  Receive Date: 20150903
  Receipt Date: 20150903
  Transmission Date: 20151125
  Serious: No
  Sender: FDA-Public Use
  Company Number: US-ROCHE-1059952

PATIENT
  Age: 52 Year
  Sex: Male

DRUGS (3)
  1. BOCEPREVIR [Concomitant]
     Active Substance: BOCEPREVIR
     Indication: CHRONIC HEPATITIS C
     Route: 065
     Dates: start: 20120413
  2. PEGASYS [Suspect]
     Active Substance: PEGINTERFERON ALFA-2A
     Indication: CHRONIC HEPATITIS C
     Route: 058
     Dates: start: 20120316
  3. RIBAVIRIN. [Suspect]
     Active Substance: RIBAVIRIN
     Indication: CHRONIC HEPATITIS C
     Dosage: DIVIDED DOSE
     Route: 065
     Dates: start: 20120316

REACTIONS (2)
  - Pain in extremity [Unknown]
  - Unevaluable event [Unknown]

NARRATIVE: CASE EVENT DATE: 20120413
